FAERS Safety Report 5964637-0 (Version None)
Quarter: 2008Q4

REPORT INFORMATION
  Report Type: 
  Country: None (occurrence: None)
  Receive Date: 20081125
  Receipt Date: 20081117
  Transmission Date: 20090506
  Serious: Yes (Death, Hospitalization)
  Sender: FDA-Public Use
  Company Number: BR-BAYER-200820941LA

PATIENT
  Sex: Female

DRUGS (1)
  1. YAZ [Suspect]
     Indication: DRUG USE FOR UNKNOWN INDICATION
     Route: 048
     Dates: start: 20080701, end: 20080801

REACTIONS (8)
  - CARDIO-RESPIRATORY ARREST [None]
  - CEREBRAL HAEMORRHAGE [None]
  - COMA [None]
  - FACIAL PALSY [None]
  - HEADACHE [None]
  - PNEUMONIA [None]
  - RUPTURED CEREBRAL ANEURYSM [None]
  - SEPSIS [None]
